FAERS Safety Report 8357629-8 (Version None)
Quarter: 2012Q2

REPORT INFORMATION
  Report Type: 
  Country: None (occurrence: None)
  Receive Date: 20120514
  Receipt Date: 20120510
  Transmission Date: 20120825
  Serious: No
  Sender: FDA-Public Use
  Company Number: US-PFIZER INC-2012114739

PATIENT
  Sex: Female

DRUGS (1)
  1. PRISTIQ [Suspect]
     Dosage: 50 MG, UNK
     Dates: start: 20110101

REACTIONS (6)
  - WITHDRAWAL SYNDROME [None]
  - ABNORMAL DREAMS [None]
  - FEELING COLD [None]
  - DRUG INTOLERANCE [None]
  - NAUSEA [None]
  - HEADACHE [None]
